FAERS Safety Report 21579599 (Version 3)
Quarter: 2022Q4

REPORT INFORMATION
  Report Type: Spontaneous
  Country: US (occurrence: US)
  Receive Date: 20221110
  Receipt Date: 20221116
  Transmission Date: 20230113
  Serious: Yes (Hospitalization)
  Sender: FDA-Public Use
  Company Number: US-ALKERMES INC.-ALK-2022-005422

PATIENT
  Age: 38 Year
  Sex: Female

DRUGS (1)
  1. VIVITROL [Suspect]
     Active Substance: NALTREXONE
     Indication: Product used for unknown indication
     Dosage: 380 MILLIGRAM, QMO
     Route: 030
     Dates: start: 20220418, end: 20220919

REACTIONS (5)
  - Sepsis [Recovered/Resolved]
  - Pneumonia [Recovering/Resolving]
  - Eosinophilic pneumonia [Recovered/Resolved]
  - Off label use [Unknown]
  - Drug hypersensitivity [Unknown]

NARRATIVE: CASE EVENT DATE: 20220922
